FAERS Safety Report 9216746 (Version 1)
Quarter: 2013Q1

REPORT INFORMATION
  Report Type: Spontaneous
  Country: JP (occurrence: None)
  Receive Date: 20130212
  Receipt Date: 20130212
  Transmission Date: 20140127
  Serious: Yes (Hospitalization, Other)
  Sender: FDA-Public Use
  Company Number: 02100-JPN-04-0142

PATIENT
  Age: 62 Year
  Sex: Male

DRUGS (11)
  1. PLETAAL (CILOSTAZOL) TABLET [Suspect]
     Indication: CEREBRAL INFARCTION
     Route: 048
     Dates: start: 20040414
  2. MEPTIN (PROCATEROL HYDROCHLORIDE) [Concomitant]
  3. UNIPHYL (THEOPHYLLINE) [Concomitant]
  4. ALESION (EPINASTINE HYDROCHLORIDE) [Concomitant]
  5. NORVASK (AMLODIPINE) [Concomitant]
  6. CELESTAMINE (CHLORPHENAMINE MALEATE, BETAMETHASONE) [Concomitant]
  7. ALTAT (ROXATIDINE ACETATE HYDROCHLORIDE) [Concomitant]
  8. MUCOSOLVAN (AMBROXOL HYDROCHLORIDE) [Concomitant]
  9. PULMICORT (BUDESONIDE) [Concomitant]
  10. BEROTEC (FENOTEROL HYDROBROMIDE) [Concomitant]
  11. MERISLON (BETAHISTINE HYDROCHLORIDE) [Concomitant]

REACTIONS (5)
  - Renal impairment [None]
  - Inflammation [None]
  - Local swelling [None]
  - Pyrexia [None]
  - Hypersensitivity [None]
